FAERS Safety Report 17146696 (Version 1)
Quarter: 2019Q4

REPORT INFORMATION
  Report Type: Spontaneous
  Country: DE (occurrence: DE)
  Receive Date: 20191212
  Receipt Date: 20191212
  Transmission Date: 20200122
  Serious: Yes (Hospitalization)
  Sender: FDA-Public Use
  Company Number: DE-MYLANLABS-2019M1122100

PATIENT
  Age: 82 Year
  Sex: Male
  Weight: 92 kg

DRUGS (7)
  1. ENOXAPARIN [Concomitant]
     Active Substance: ENOXAPARIN
     Dosage: 0.4 MILLILITER, 1-0-0, INJEKTIONS-/INFUSIONSLOSUNG
     Route: 058
  2. TAMSULOSIN [Concomitant]
     Active Substance: TAMSULOSIN
     Dosage: 0.4 MILLIGRAM, 1-0-0, TABLETTEN
     Route: 048
  3. FINASTERID [Concomitant]
     Active Substance: FINASTERIDE
     Dosage: 5 MILLIGRAM, 1-0-0, TABLETTEN
     Route: 048
  4. LEVOTHYROXINENATRIUM TEVA [Concomitant]
     Dosage: 125 MICROGRAM, 1-0-0, TABLETTEN
     Route: 048
  5. ACETYLSALICYLSAEURE [Concomitant]
     Active Substance: ASPIRIN
     Dosage: 100 MILLIGRAM, 1-0-0, TABLETTEN
     Route: 048
  6. MACROGOL [Concomitant]
     Active Substance: POLYETHYLENE GLYCOLS
     Dosage: UNK 0-1-0, PULVER
     Route: 048
  7. TELMISARTAN. [Suspect]
     Active Substance: TELMISARTAN
     Indication: PRODUCT USED FOR UNKNOWN INDICATION
     Dosage: 40 MILLIGRAM (0-0-1; SEIT 8 TAGEN PAUSIERT, TABLETTEN)
     Route: 048

REACTIONS (4)
  - Tremor [Unknown]
  - Headache [Unknown]
  - Labile blood pressure [Unknown]
  - Restlessness [Unknown]
